FAERS Safety Report 7797632-X (Version None)
Quarter: 2011Q4

REPORT INFORMATION
  Report Type: 
  Country: None (occurrence: None)
  Receive Date: 20111004
  Receipt Date: 20111004
  Transmission Date: 20120403
  Serious: Yes (Hospitalization)
  Sender: FDA-Public Use
  Company Number: None

PATIENT
  Sex: Female
  Weight: 63 kg

DRUGS (6)
  1. FLUOROURACIL [Suspect]
     Dosage: 3628 MG
     Dates: end: 20110831
  2. BEVACIZUMAB (RHUMAB VEGF) [Suspect]
     Dosage: 315 MG
     Dates: end: 20110829
  3. ELOXATIN [Suspect]
     Dosage: 105 MG
     Dates: end: 20110829
  4. CIPROFLOXACIN [Concomitant]
  5. KEFLEX [Concomitant]
  6. LEUCOVORIN CALCIUM [Suspect]
     Dosage: 648 MG
     Dates: end: 20110829

REACTIONS (13)
  - VOMITING [None]
  - BLOOD SODIUM DECREASED [None]
  - ASCITES [None]
  - ASPIRATION [None]
  - DIARRHOEA [None]
  - NAUSEA [None]
  - INCONTINENCE [None]
  - BLOOD POTASSIUM DECREASED [None]
  - BLOOD ALBUMIN DECREASED [None]
  - CLOSTRIDIUM DIFFICILE COLITIS [None]
  - SMALL INTESTINAL OBSTRUCTION [None]
  - PERFORMANCE STATUS DECREASED [None]
  - RESPIRATORY DISTRESS [None]
